FAERS Safety Report 5885200-6 (Version None)
Quarter: 2008Q3

REPORT INFORMATION
  Report Type: 
  Country: None (occurrence: None)
  Receive Date: 20080916
  Receipt Date: 20080902
  Transmission Date: 20090109
  Serious: Yes (Hospitalization)
  Sender: FDA-Public Use
  Company Number: PHHO1996CA05062

PATIENT
  Sex: Female
  Weight: 47 kg

DRUGS (1)
  1. NEORAL [Suspect]
     Route: 048
     Dates: start: 19960820

REACTIONS (6)
  - DYSPNOEA [None]
  - OEDEMA PERIPHERAL [None]
  - PNEUMONIA LEGIONELLA [None]
  - PYREXIA [None]
  - STOMATITIS [None]
  - VIRAL INFECTION [None]
